FAERS Safety Report 9161889 (Version 2)
Quarter: 2013Q1

REPORT INFORMATION
  Report Type: Spontaneous
  Country: JP (occurrence: None)
  Receive Date: 20130225
  Receipt Date: 20130313
  Transmission Date: 20140127
  Serious: Yes (Hospitalization)
  Sender: FDA-Public Use
  Company Number: UTC-029395

PATIENT
  Age: 64 Year
  Sex: Female
  Weight: 47 kg

DRUGS (15)
  1. REMODULIN [Suspect]
     Indication: PULMONARY ARTERIAL HYPERTENSION
     Dosage: 0.14 UG/KG, 1 IN 1
     Route: 041
     Dates: start: 20120329
  2. TRACLEER (BOSENTAN) (TABLET) [Concomitant]
     Indication: PROPHYLAXIS AGAINST GASTROINTESTINAL ULCER
  3. TAKEPRON (LANSOPRAZOL) (TABLET) [Concomitant]
     Indication: PULMONARY HYPERTENSION
  4. PIROLACTON (SPRIONLOCTONE) (TABLET) [Concomitant]
     Indication: PULMONARY HYPERTENSION
  5. LASIX (FUROSEMIDE) (TABLET) [Concomitant]
     Indication: PULMONARY HYPERTENSION
  6. MAGNESIUM OXIDE (MAGNESIUM OXIDE) [Concomitant]
  7. GASMOTIN (MOSAPRIDE CITRATE) [Concomitant]
  8. WARFARIN (WARFARIN POTASSOIM) [Concomitant]
  9. DIGOSIN (DIGOXIN) [Concomitant]
  10. SLOW-K (POTASSIUM CHLORIDE) [Concomitant]
  11. REVATIO (SILDENAFIL CITRATE) (UNKNOWN) (SILDENAFIL) [Concomitant]
  12. PROMAC (IPOLAPREZI NC) [Concomitant]
  13. BERBERON (SODIUIM PICOSULFATE) [Concomitant]
  14. LOXONIN (LOXOPROFEN SODIUM) [Concomitant]
  15. POVIKDONEIODINE (POVIDONE-IODINE) [Concomitant]

REACTIONS (11)
  - Right ventricular failure [None]
  - Iron deficiency anaemia [None]
  - No therapeutic response [None]
  - Cardiomegaly [None]
  - Gastrointestinal tract adenoma [None]
  - Gastrointestinal haemorrhage [None]
  - Large intestine polyp [None]
  - Tricuspid valve incompetence [None]
  - Pericardial effusion [None]
  - Weight decreased [None]
  - Treatment noncompliance [None]
